FAERS Safety Report 13456937 (Version 1)
Quarter: 2017Q2

REPORT INFORMATION
  Report Type: Spontaneous
  Country: GR (occurrence: GR)
  Receive Date: 20170418
  Receipt Date: 20170418
  Transmission Date: 20170830
  Serious: Yes (Other)
  Sender: FDA-Public Use
  Company Number: GR-BAXTER-2017BAX016729

PATIENT
  Age: 59 Year
  Sex: Female

DRUGS (16)
  1. AVASTIN [Suspect]
     Active Substance: BEVACIZUMAB
     Indication: TRIPLE NEGATIVE BREAST CANCER
     Dosage: FIRST CYCLE
     Route: 065
     Dates: start: 20170131
  2. CARBOPLATIN. [Suspect]
     Active Substance: CARBOPLATIN
     Indication: TRIPLE NEGATIVE BREAST CANCER
     Route: 065
  3. CARBOPLATIN. [Suspect]
     Active Substance: CARBOPLATIN
     Indication: BREAST CANCER METASTATIC
  4. ENDOXAN 1000 MG - POWDER FOR SOLUTION FOR INJECTION [Suspect]
     Active Substance: CYCLOPHOSPHAMIDE
     Indication: BREAST CANCER METASTATIC
     Dosage: FIRST CYCLE
     Route: 065
     Dates: start: 20170131
  5. ENDOXAN 1000 MG - POWDER FOR SOLUTION FOR INJECTION [Suspect]
     Active Substance: CYCLOPHOSPHAMIDE
     Dosage: SECOND CYCLE
     Route: 065
     Dates: start: 20170214
  6. AVASTIN [Suspect]
     Active Substance: BEVACIZUMAB
     Indication: BREAST CANCER METASTATIC
     Dosage: SECOND CYCLE
     Route: 065
     Dates: start: 20170214
  7. FILGRASTIM [Concomitant]
     Active Substance: FILGRASTIM
     Indication: PRODUCT USED FOR UNKNOWN INDICATION
     Dosage: 30 MU/0.5ML; FROM DAY3 TO DAY9 OF CHEMOTHERAPY
     Route: 065
  8. ADRIBLASTINA [Suspect]
     Active Substance: DOXORUBICIN HYDROCHLORIDE
     Indication: TRIPLE NEGATIVE BREAST CANCER
     Dosage: 4 CYCLES OF 15 DAYS(IN THE PAST)
     Route: 065
     Dates: start: 20160909, end: 20161021
  9. TAXOTERE [Suspect]
     Active Substance: DOCETAXEL
     Indication: TRIPLE NEGATIVE BREAST CANCER
     Dosage: 4 CYCLES
     Route: 065
  10. TAXOTERE [Suspect]
     Active Substance: DOCETAXEL
     Indication: BREAST CANCER METASTATIC
  11. ENDOXAN 1000 MG - POWDER FOR SOLUTION FOR INJECTION [Suspect]
     Active Substance: CYCLOPHOSPHAMIDE
     Indication: TRIPLE NEGATIVE BREAST CANCER
     Dosage: 4 CYCLES OF 15 DAYS(IN THE PAST)
     Route: 065
     Dates: start: 20160909, end: 20161021
  12. ADRIBLASTINA [Suspect]
     Active Substance: DOXORUBICIN HYDROCHLORIDE
     Indication: BREAST CANCER METASTATIC
     Dosage: FIRST CYCLE
     Route: 065
     Dates: start: 20170131
  13. ADRIBLASTINA [Suspect]
     Active Substance: DOXORUBICIN HYDROCHLORIDE
     Dosage: SECOND CYCLE
     Route: 065
     Dates: start: 20170214
  14. XARELTO [Concomitant]
     Active Substance: RIVAROXABAN
     Indication: ANTICOAGULANT THERAPY
     Route: 065
  15. GEMZAR [Suspect]
     Active Substance: GEMCITABINE HYDROCHLORIDE
     Indication: BREAST CANCER METASTATIC
  16. GEMZAR [Suspect]
     Active Substance: GEMCITABINE HYDROCHLORIDE
     Indication: TRIPLE NEGATIVE BREAST CANCER
     Route: 065

REACTIONS (11)
  - Metastases to bone [Unknown]
  - Pain [Unknown]
  - Metastases to skin [Unknown]
  - Metastases to lymph nodes [Unknown]
  - Neoplasm progression [Unknown]
  - Drug resistance [Unknown]
  - Erythema [Unknown]
  - Metastases to lung [Unknown]
  - Pain [Recovered/Resolved]
  - Metastases to breast [Unknown]
  - Breast induration [Unknown]

NARRATIVE: CASE EVENT DATE: 201702
